FAERS Safety Report 11178235 (Version 3)
Quarter: 2015Q3

REPORT INFORMATION
  Report Type: Spontaneous
  Country: US (occurrence: US)
  Receive Date: 20150610
  Receipt Date: 20150730
  Transmission Date: 20151125
  Serious: Yes (Hospitalization, Other)
  Sender: FDA-Public Use
  Company Number: US-UCBSA-2015018186

PATIENT
  Age: 53 Year
  Sex: Female
  Weight: 82 kg

DRUGS (15)
  1. POTASSIUM [Concomitant]
     Active Substance: POTASSIUM
     Indication: PRODUCT USED FOR UNKNOWN INDICATION
     Dosage: UNK
     Dates: start: 201405
  2. FLOVENT [Concomitant]
     Active Substance: FLUTICASONE PROPIONATE
     Indication: ASTHMA
     Dosage: 220 ?G, STARTED 5 YEARS AGO
  3. HYDROCODONE [Concomitant]
     Active Substance: HYDROCODONE
     Indication: PAIN
     Dosage: 5-32.5 MG, AS NEEDED (PRN), STARTED 2 MONTHS AGO
     Route: 048
     Dates: start: 2015
  4. CARVEDILOL. [Concomitant]
     Active Substance: CARVEDILOL
     Indication: BLOOD PRESSURE MEASUREMENT
     Dosage: 12.5 MG, 2X/DAY (BID)
     Route: 048
     Dates: start: 201405
  5. HYDROXYCHLOROQUINE [Concomitant]
     Active Substance: HYDROXYCHLOROQUINE
     Indication: ARTHRITIS
     Dosage: 400 MG, ONCE DAILY (QD)
     Route: 048
     Dates: start: 201405
  6. PRILOSEC [Concomitant]
     Active Substance: OMEPRAZOLE MAGNESIUM
     Indication: GASTROOESOPHAGEAL REFLUX DISEASE
     Dosage: STARTED COUPLE OF YEARS AGO, ONCE DAILY (QD)
     Route: 048
  7. METHOCARBAMOL. [Concomitant]
     Active Substance: METHOCARBAMOL
     Indication: MUSCLE RELAXANT THERAPY
     Dosage: 1000 MG, 4X/DAY (QID)
     Route: 048
     Dates: start: 201405
  8. VIMPAT [Suspect]
     Active Substance: LACOSAMIDE
     Indication: SEIZURE
     Dosage: 200 MG
  9. VIMPAT [Suspect]
     Active Substance: LACOSAMIDE
     Dosage: 150 MG
  10. VIMPAT [Suspect]
     Active Substance: LACOSAMIDE
     Dosage: 200 MG
  11. PAROXETINE [Concomitant]
     Active Substance: PAROXETINE\PAROXETINE HYDROCHLORIDE
     Indication: MOOD ALTERED
     Dosage: 40 MG, ONCE DAILY (QD), STARTED 2 YEARS AGO
     Route: 048
  12. TYLENOL WITH CODEINE [Concomitant]
     Active Substance: ACETAMINOPHEN\CODEINE PHOSPHATE
     Indication: PAIN
     Dosage: UNK, AS NEEDED (PRN), STARTED BEFORE MAY-2014
     Route: 048
  13. VITAMIN D [Concomitant]
     Active Substance: CHOLECALCIFEROL
     Dosage: 1000 MG, WEEKLY (QW)
     Dates: start: 201405
  14. NASONEX [Concomitant]
     Active Substance: MOMETASONE FUROATE
     Indication: SINUS DISORDER
     Dosage: STARTED ONE OR TWO YEARS AGO
     Route: 045
  15. CLONAZEPAM. [Concomitant]
     Active Substance: CLONAZEPAM
     Indication: DEPRESSION
     Dosage: 1 MG, AS NEEDED (PRN), STARTED 2 YEARS AGO
     Route: 048

REACTIONS (9)
  - Somnolence [Unknown]
  - Headache [Unknown]
  - Nausea [Unknown]
  - Diplopia [Unknown]
  - Coma [Unknown]
  - Pneumothorax [Unknown]
  - Liver disorder [Unknown]
  - Spinal fracture [Recovered/Resolved]
  - Dizziness [Unknown]

NARRATIVE: CASE EVENT DATE: 2014
